FAERS Safety Report 7306349-7 (Version None)
Quarter: 2011Q1

REPORT INFORMATION
  Report Type: 
  Country: None (occurrence: None)
  Receive Date: 20110222
  Receipt Date: 20110211
  Transmission Date: 20110831
  Serious: Yes (Other)
  Sender: FDA-Public Use
  Company Number: TH-JNJFOC-20110204656

PATIENT
  Sex: Female
  Weight: 69 kg

DRUGS (2)
  1. USTEKINUMAB [Suspect]
     Indication: PSORIASIS
     Route: 058
  2. USTEKINUMAB [Suspect]
     Indication: PSORIATIC ARTHROPATHY
     Route: 058

REACTIONS (1)
  - UPPER RESPIRATORY TRACT INFECTION [None]
